FAERS Safety Report 17941226 (Version 2)
Quarter: 2020Q4

REPORT INFORMATION
  Report Type: Spontaneous
  Country: US (occurrence: US)
  Receive Date: 20200624
  Receipt Date: 20201016
  Transmission Date: 20210113
  Serious: No
  Sender: FDA-Public Use
  Company Number: US-AGIOS-2006US01994

PATIENT

DRUGS (1)
  1. TIBSOVO [Suspect]
     Active Substance: IVOSIDENIB
     Indication: ASTROCYTOMA MALIGNANT
     Dosage: 250MG, 2 TABLETS (500MG) DAILY

REACTIONS (2)
  - Wrong technique in product usage process [Unknown]
  - Off label use [Unknown]
